FAERS Safety Report 8204484-2 (Version None)
Quarter: 2012Q1

REPORT INFORMATION
  Report Type: 
  Country: None (occurrence: None)
  Receive Date: 20120309
  Receipt Date: 20120222
  Transmission Date: 20120608
  Serious: Yes (Hospitalization)
  Sender: FDA-Public Use
  Company Number: SAN_00059_2012

PATIENT
  Age: 57 Year
  Sex: Female

DRUGS (1)
  1. METFORMIN HCL [Suspect]
     Indication: TYPE 2 DIABETES MELLITUS
     Dosage: 850 MG, TID

REACTIONS (15)
  - RENAL FAILURE ACUTE [None]
  - POST PROCEDURAL COMPLICATION [None]
  - PULMONARY OEDEMA [None]
  - CARDIAC ARREST [None]
  - LACTIC ACIDOSIS [None]
  - HYPOKINESIA [None]
  - MENTAL STATUS CHANGES [None]
  - PROCEDURAL VOMITING [None]
  - HAEMODIALYSIS [None]
  - SHOCK [None]
  - PROCEDURAL NAUSEA [None]
  - RESPIRATORY FAILURE [None]
  - HYPOXIC-ISCHAEMIC ENCEPHALOPATHY [None]
  - DEHYDRATION [None]
  - BLOOD GLUCOSE INCREASED [None]
